FAERS Safety Report 7692380-9 (Version None)
Quarter: 2011Q3

REPORT INFORMATION
  Report Type: 
  Country: None (occurrence: None)
  Receive Date: 20110818
  Receipt Date: 20110815
  Transmission Date: 20111222
  Serious: Yes (Other)
  Sender: FDA-Public Use
  Company Number: GB-B.I. PHARMACEUTICALS,INC./RIDGEFIELD-2011-UK-00826UK

PATIENT
  Sex: Male

DRUGS (1)
  1. VIRAMUNE [Suspect]

REACTIONS (1)
  - HEPATIC FAILURE [None]
